FAERS Safety Report 20534385 (Version 1)
Quarter: 2022Q1

REPORT INFORMATION
  Report Type: Spontaneous
  Country: DE (occurrence: DE)
  Receive Date: 20220302
  Receipt Date: 20220302
  Transmission Date: 20220423
  Serious: Yes (Hospitalization)
  Sender: FDA-Public Use
  Company Number: DE-002147023-NVSC2022DE032295

PATIENT
  Age: 67 Year
  Sex: Female

DRUGS (4)
  1. ESCITALOPRAM [Suspect]
     Active Substance: ESCITALOPRAM OXALATE
     Indication: Depression
     Dosage: UNK
     Route: 065
     Dates: start: 2019
  2. ESCITALOPRAM [Suspect]
     Active Substance: ESCITALOPRAM OXALATE
     Indication: Stress
  3. CARBAMAZEPINE [Suspect]
     Active Substance: CARBAMAZEPINE
     Indication: Bipolar I disorder
     Dosage: 1 DOSAGE FORM, ONCE A DAY
     Route: 065
     Dates: start: 2006
  4. CARBAMAZEPINE [Suspect]
     Active Substance: CARBAMAZEPINE
     Dosage: UNK
     Route: 065
     Dates: start: 2019

REACTIONS (10)
  - Depression [Unknown]
  - Stress [Recovered/Resolved]
  - Gait disturbance [Recovered/Resolved]
  - Blood sodium decreased [Recovered/Resolved]
  - Tremor [Recovered/Resolved]
  - Speech disorder [Recovered/Resolved]
  - Muscle twitching [Recovered/Resolved]
  - Muscle spasms [Recovered/Resolved]
  - Hypertension [Recovered/Resolved]
  - Product use in unapproved indication [Unknown]

NARRATIVE: CASE EVENT DATE: 20190101
